FAERS Safety Report 5665012-9 (Version None)
Quarter: 2008Q1

REPORT INFORMATION
  Report Type: 
  Country: None (occurrence: None)
  Receive Date: 20080314
  Receipt Date: 20080304
  Transmission Date: 20080703
  Serious: Yes (Other)
  Sender: FDA-Public Use
  Company Number: ES-PFIZER INC-2008020247

PATIENT
  Sex: Female

DRUGS (4)
  1. BESITRAN [Suspect]
     Indication: DEPRESSED MOOD
     Route: 048
     Dates: start: 20080201, end: 20080201
  2. LYRICA [Concomitant]
  3. ACETAMINOPHEN [Concomitant]
  4. CAPTOPRIL [Concomitant]

REACTIONS (4)
  - COGNITIVE DISORDER [None]
  - DEPRESSION [None]
  - DISORIENTATION [None]
  - RESTLESSNESS [None]
